FAERS Safety Report 4476043-9 (Version None)
Quarter: 2004Q3

REPORT INFORMATION
  Report Type: 
  Country: None (occurrence: None)
  Receive Date: 20040923
  Receipt Date: 20040618
  Transmission Date: 20050211
  Serious: No
  Sender: FDA-Public Use
  Company Number: USA040670634

PATIENT
  Age: 93 Year
  Sex: Female
  Weight: 65 kg

DRUGS (4)
  1. FORTEO [Suspect]
     Indication: OSTEOPOROSIS
     Dates: start: 20040603
  2. VITAMIN E [Concomitant]
  3. MAXZIDE [Concomitant]
  4. ULTRAM [Concomitant]

REACTIONS (6)
  - DIARRHOEA [None]
  - EYE PRURITUS [None]
  - HYPERHIDROSIS [None]
  - NAUSEA [None]
  - PRURITUS [None]
  - THROMBOSIS [None]
